FAERS Safety Report 8571517-3 (Version None)
Quarter: 2012Q3

REPORT INFORMATION
  Report Type: 
  Country: None (occurrence: None)
  Receive Date: 20120806
  Receipt Date: 20120725
  Transmission Date: 20120928
  Serious: Yes (Other)
  Sender: FDA-Public Use
  Company Number: US-JNJFOC-20120801562

PATIENT
  Sex: Female
  Weight: 61.24 kg

DRUGS (3)
  1. DURAGESIC-100 [Suspect]
     Dosage: ONE 75 UG/HR PATCH + ONE 50 UG/HR PATCH
     Route: 062
     Dates: start: 20110301
  2. DURAGESIC-100 [Suspect]
     Indication: INTERVERTEBRAL DISC DEGENERATION
     Dosage: ONE 100 UG/HR PATCH + ONE 12.5 UG/HR PATCH
     Route: 062
     Dates: start: 20090101, end: 20110301
  3. DURAGESIC-100 [Suspect]
     Dosage: ONE 100 UG/HR PATCH + ONE 25 UG/HR PATCH
     Route: 062
     Dates: start: 20090101, end: 20110301

REACTIONS (4)
  - HAND FRACTURE [None]
  - THERAPEUTIC RESPONSE DECREASED [None]
  - SOFT TISSUE INJURY [None]
  - DRUG INEFFECTIVE [None]
